FAERS Safety Report 15903336 (Version 2)
Quarter: 2019Q1

REPORT INFORMATION
  Report Type: Spontaneous
  Country: FR (occurrence: FR)
  Receive Date: 20190202
  Receipt Date: 20190215
  Transmission Date: 20190417
  Serious: Yes (Hospitalization, Other)
  Sender: FDA-Public Use
  Company Number: PHHY2019FR022171

PATIENT
  Age: 45 Year
  Sex: Female
  Weight: 119 kg

DRUGS (15)
  1. FOSFOCINE [Concomitant]
     Active Substance: FOSFOMYCIN
     Indication: OSTEITIS
     Dosage: 4 G, BID
     Route: 042
     Dates: start: 20190102, end: 20190107
  2. MEROPENEM. [Concomitant]
     Active Substance: MEROPENEM
     Indication: MENINGITIS
     Dosage: 2 G, Q12H (BID)
     Route: 042
     Dates: start: 20181229, end: 20190105
  3. PANTOPRAZOLE [Suspect]
     Active Substance: PANTOPRAZOLE
     Dosage: 20 MG, QD
     Route: 048
     Dates: start: 20181116, end: 20181230
  4. PANTOPRAZOLE [Suspect]
     Active Substance: PANTOPRAZOLE
     Indication: STRESS ULCER
     Dosage: 20 MG, QD
     Route: 048
     Dates: start: 20181020, end: 20181113
  5. TARDYFERON [Suspect]
     Active Substance: FERROUS SULFATE
     Indication: IRON DEFICIENCY
     Dosage: 80 MG, Q12H (BID)
     Route: 048
     Dates: start: 20181121, end: 20190102
  6. FOSFOCINE [Concomitant]
     Active Substance: FOSFOMYCIN
     Indication: MENINGITIS
     Dosage: 4 G, QID
     Route: 042
     Dates: start: 20181229, end: 20190101
  7. MEROPENEM. [Concomitant]
     Active Substance: MEROPENEM
     Indication: OSTEITIS
     Dosage: 2 G, TID
     Route: 042
     Dates: start: 20181126, end: 20181228
  8. FERROSTRANE [Concomitant]
     Active Substance: SODIUM FEREDETATE
     Indication: PRODUCT USED FOR UNKNOWN INDICATION
     Dosage: 15 ML, BID
     Route: 065
  9. AZACTAM [Concomitant]
     Active Substance: AZTREONAM
     Indication: PRODUCT USED FOR UNKNOWN INDICATION
     Dosage: 2 G, Q8H (TID)
     Route: 065
  10. LANSOPRAZOLE. [Concomitant]
     Active Substance: LANSOPRAZOLE
     Indication: PRODUCT USED FOR UNKNOWN INDICATION
     Dosage: 15 MG, QD
     Route: 065
     Dates: start: 20190101
  11. VANCOMYCIN [Suspect]
     Active Substance: VANCOMYCIN
     Indication: OSTEITIS
     Dosage: UNK
     Route: 042
     Dates: start: 20181126, end: 20181228
  12. FOSFOCINE [Concomitant]
     Active Substance: FOSFOMYCIN
     Indication: OSTEITIS
     Dosage: 4 G, TID
     Route: 042
     Dates: start: 20190108, end: 20190108
  13. CITALOPRAM [Concomitant]
     Active Substance: CITALOPRAM HYDROBROMIDE
     Indication: PRODUCT USED FOR UNKNOWN INDICATION
     Dosage: 20 MG, UNK
     Route: 065
  14. VANCOMYCIN [Suspect]
     Active Substance: VANCOMYCIN
     Indication: MENINGITIS
  15. FUMAFER [Concomitant]
     Active Substance: FERROUS FUMARATE
     Indication: PRODUCT USED FOR UNKNOWN INDICATION
     Dosage: UNK
     Route: 065

REACTIONS (10)
  - Agranulocytosis [Recovering/Resolving]
  - Immunoglobulins decreased [Unknown]
  - Skin exfoliation [Not Recovered/Not Resolved]
  - Pruritus [Not Recovered/Not Resolved]
  - Rash generalised [Not Recovered/Not Resolved]
  - Oedema peripheral [Not Recovered/Not Resolved]
  - Rash [Recovered/Resolved]
  - Blood albumin decreased [Unknown]
  - Red man syndrome [Not Recovered/Not Resolved]
  - Generalised erythema [Not Recovered/Not Resolved]

NARRATIVE: CASE EVENT DATE: 20181122
